FAERS Safety Report 8080501-8 (Version None)
Quarter: 2012Q1

REPORT INFORMATION
  Report Type: 
  Country: None (occurrence: None)
  Receive Date: 20120130
  Receipt Date: 20120123
  Transmission Date: 20120608
  Serious: No
  Sender: FDA-Public Use
  Company Number: US-PFIZER INC-2011314912

PATIENT
  Sex: Female

DRUGS (1)
  1. NEOMYCIN SULFATE AND POLYMYXIN B SULFATE AND HYDROCORTISONE [Suspect]
     Indication: EAR INFECTION
     Dosage: UNK

REACTIONS (2)
  - EAR INFECTION [None]
  - TINNITUS [None]
